FAERS Safety Report 7144764-5 (Version None)
Quarter: 2010Q4

REPORT INFORMATION
  Report Type: 
  Country: None (occurrence: None)
  Receive Date: 20101112
  Receipt Date: 20100819
  Transmission Date: 20110411
  Serious: No
  Sender: FDA-Public Use
  Company Number: 1000015815

PATIENT
  Age: 60 Year
  Sex: Male

DRUGS (9)
  1. SAVELLA [Suspect]
     Indication: PAIN
     Dosage: SEE IMAGE
     Route: 048
     Dates: start: 20100805, end: 20100805
  2. SAVELLA [Suspect]
     Indication: PAIN
     Dosage: SEE IMAGE
     Route: 048
     Dates: start: 20100806, end: 20100807
  3. SAVELLA [Suspect]
     Indication: PAIN
     Dosage: SEE IMAGE
     Route: 048
     Dates: start: 20100808, end: 20100811
  4. SAVELLA [Suspect]
     Indication: PAIN
     Dosage: SEE IMAGE
     Route: 048
     Dates: start: 20100812
  5. OXYCONTIN [Concomitant]
  6. METHADONE [Concomitant]
  7. CELEBREX [Concomitant]
  8. DIOVAN [Concomitant]
  9. LIPITOR [Concomitant]

REACTIONS (1)
  - URINARY HESITATION [None]
